FAERS Safety Report 18837807 (Version 2)
Quarter: 2021Q2

REPORT INFORMATION
  Report Type: Spontaneous
  Country: US (occurrence: US)
  Receive Date: 20210203
  Receipt Date: 20210427
  Transmission Date: 20210717
  Serious: Yes (Other)
  Sender: FDA-Public Use
  Company Number: US-PFIZER INC-2021085763

PATIENT
  Age: 60 Year
  Sex: Female

DRUGS (1)
  1. XELJANZ [Suspect]
     Active Substance: TOFACITINIB CITRATE
     Indication: RHEUMATOID ARTHRITIS
     Dosage: 5 MG, 2X/DAY
     Route: 048
     Dates: start: 20201209, end: 202104

REACTIONS (10)
  - Nasal dryness [Unknown]
  - Headache [Unknown]
  - Pain in extremity [Unknown]
  - Dysphagia [Unknown]
  - Epistaxis [Unknown]
  - Mobility decreased [Unknown]
  - Dizziness [Unknown]
  - Dyspnoea [Unknown]
  - Dry mouth [Unknown]
  - Cough [Unknown]

NARRATIVE: CASE EVENT DATE: 2020
